FAERS Safety Report 9829244 (Version 2)
Quarter: 2015Q4

REPORT INFORMATION
  Report Type: Spontaneous
  Country: US (occurrence: US)
  Receive Date: 20140120
  Receipt Date: 20151223
  Transmission Date: 20160305
  Serious: Yes (Hospitalization)
  Sender: FDA-Public Use
  Company Number: US-AMGEN-USASP2014002852

PATIENT
  Age: 58 Year
  Sex: Male

DRUGS (2)
  1. METHOTREXATE [Concomitant]
     Active Substance: METHOTREXATE
     Dosage: UNK
  2. ENBREL [Suspect]
     Active Substance: ETANERCEPT
     Indication: RHEUMATOID ARTHRITIS
     Dosage: 50 MG, QWK
     Route: 058
     Dates: start: 201210

REACTIONS (11)
  - Stevens-Johnson syndrome [Unknown]
  - Injection site mass [Not Recovered/Not Resolved]
  - Amnesia [Recovered/Resolved]
  - Weight decreased [Recovered/Resolved]
  - Pain in extremity [Not Recovered/Not Resolved]
  - Disturbance in attention [Recovered/Resolved]
  - Injection site pain [Not Recovered/Not Resolved]
  - Wrong technique in product usage process [Unknown]
  - Neck pain [Not Recovered/Not Resolved]
  - Musculoskeletal pain [Not Recovered/Not Resolved]
  - Sleep disorder due to a general medical condition [Not Recovered/Not Resolved]

NARRATIVE: CASE EVENT DATE: 201401
